FAERS Safety Report 14088659 (Version 4)
Quarter: 2017Q4

REPORT INFORMATION
  Report Type: Report from Study
  Country: TW (occurrence: TW)
  Receive Date: 20171013
  Receipt Date: 20171106
  Transmission Date: 20180321
  Serious: Yes (Hospitalization)
  Sender: FDA-Public Use
  Company Number: TW-EMD SERONO-E2B_80082976

PATIENT
  Age: 79 Year
  Sex: Female
  Weight: 39 kg

DRUGS (4)
  1. ACETAMINOPHEN. [Concomitant]
     Active Substance: ACETAMINOPHEN
     Indication: MYALGIA
     Dosage: 500 MG, 3X/DAY
     Route: 048
     Dates: start: 20170904
  2. AVELUMAB [Suspect]
     Active Substance: AVELUMAB
     Indication: OVARIAN CANCER
     Dosage: 374 MG, EVERY 2 WEEKS
     Route: 042
     Dates: start: 20170410, end: 20170829
  3. LEVOCETIRIZINE [Concomitant]
     Active Substance: LEVOCETIRIZINE
     Indication: RASH
     Dosage: 5 MG, 1X/DAY
     Route: 048
     Dates: start: 20170820
  4. FUROSEMIDE. [Concomitant]
     Active Substance: FUROSEMIDE
     Indication: OEDEMA
     Dosage: 20 MG, QD
     Route: 048
     Dates: start: 20170904, end: 20170909

REACTIONS (1)
  - Systemic lupus erythematosus [Recovered/Resolved with Sequelae]

NARRATIVE: CASE EVENT DATE: 20170911
